FAERS Safety Report 6893644-9 (Version None)
Quarter: 2010Q3

REPORT INFORMATION
  Report Type: 
  Country: None (occurrence: None)
  Receive Date: 20100731
  Receipt Date: 20091120
  Transmission Date: 20110219
  Serious: No
  Sender: FDA-Public Use
  Company Number: US-PFIZER INC-2009268235

PATIENT
  Sex: Male
  Weight: 73.5 kg

DRUGS (3)
  1. LIPITOR [Suspect]
     Indication: MYOCARDIAL INFARCTION
     Dosage: 20 MG, 1X/DAY
     Dates: start: 20080715, end: 20090911
  2. LIPITOR [Suspect]
     Indication: CORONARY ARTERY DISEASE
  3. LIPITOR [Suspect]
     Indication: HYPERLIPIDAEMIA

REACTIONS (4)
  - ASTHENIA [None]
  - BLOOD CREATINE PHOSPHOKINASE INCREASED [None]
  - MUSCULOSKELETAL PAIN [None]
  - MYALGIA [None]
